FAERS Safety Report 11164639 (Version 1)
Quarter: 2015Q2

REPORT INFORMATION
  Report Type: Spontaneous
  Country: US (occurrence: US)
  Receive Date: 20150604
  Receipt Date: 20150604
  Transmission Date: 20150821
  Serious: No
  Sender: FDA-Public Use
  Company Number: US-009507513-1505USA010828

PATIENT

DRUGS (2)
  1. PROSCAR [Suspect]
     Active Substance: FINASTERIDE
     Dosage: 5 MG
  2. PROSCAR [Suspect]
     Active Substance: FINASTERIDE
     Dosage: 15 MG
     Route: 048

REACTIONS (1)
  - Haematuria [Recovered/Resolved]
